FAERS Safety Report 10036066 (Version 2)
Quarter: 2014Q2

REPORT INFORMATION
  Report Type: Spontaneous
  Country: US (occurrence: US)
  Receive Date: 20140325
  Receipt Date: 20140411
  Transmission Date: 20141212
  Serious: Yes (Other)
  Sender: FDA-Public Use
  Company Number: US-BAYER-2014-041182

PATIENT
  Age: 67 Year
  Sex: Male

DRUGS (1)
  1. ACETYLSALICYLIC ACID (} 100 MG) [Suspect]
     Indication: ABDOMINAL DISCOMFORT
     Dosage: UNK UNK, QID
     Route: 048

REACTIONS (7)
  - Small intestinal haemorrhage [None]
  - Gastritis erosive [None]
  - Feeding tube complication [None]
  - Tumour ulceration [None]
  - Off label use [None]
  - Hypotension [None]
  - Tachycardia [None]
